FAERS Safety Report 17201305 (Version 1)
Quarter: 2019Q4

REPORT INFORMATION
  Report Type: Spontaneous
  Country: DE (occurrence: DE)
  Receive Date: 20191226
  Receipt Date: 20191226
  Transmission Date: 20200122
  Serious: Yes (Hospitalization, Other)
  Sender: FDA-Public Use
  Company Number: DE-ASCEND THERAPEUTICS US, LLC-2077395

PATIENT
  Age: 41 Year
  Sex: Female

DRUGS (6)
  1. GYNOKADIN (ESTRADIOL) HEMIHYDRATE (GEL) UNKNOWN [Suspect]
     Active Substance: ESTRADIOL HEMIHYDRATE
  2. GONAL-F [Suspect]
     Active Substance: FOLLITROPIN
  3. OVITRELLE (CHORIONGONADOTROPIN ALFA), UNKNOWN [Suspect]
     Active Substance: CHORIOGONADOTROPIN ALFA
  4. ESTROGEL [Suspect]
     Active Substance: ESTRADIOL
     Indication: ASSISTED REPRODUCTIVE TECHNOLOGY
  5. CLOMIFEN (CLOMIFEN), UNKNOWN [Suspect]
     Active Substance: CLOMIPHENE
  6. ORGALUTRAN [Suspect]
     Active Substance: GANIRELIX ACETATE

REACTIONS (1)
  - Ovarian haemorrhage [Recovered/Resolved]

NARRATIVE: CASE EVENT DATE: 20191114
